FAERS Safety Report 16791352 (Version 1)
Quarter: 2019Q3

REPORT INFORMATION
  Report Type: Spontaneous
  Country: US (occurrence: US)
  Receive Date: 20190910
  Receipt Date: 20190910
  Transmission Date: 20191005
  Serious: Yes (Other)
  Sender: FDA-Public Use
  Company Number: US-COSETTE PHARMACEUTICALS, INC.-GW2019US000145

PATIENT

DRUGS (1)
  1. ACETAMINOPHEN. [Suspect]
     Active Substance: ACETAMINOPHEN
     Indication: PRODUCT USED FOR UNKNOWN INDICATION
     Route: 065

REACTIONS (6)
  - Seizure [Recovered/Resolved with Sequelae]
  - Toxicity to various agents [Recovered/Resolved]
  - Respiratory disorder prophylaxis [Recovered/Resolved]
  - Hypoglycaemia [Recovered/Resolved]
  - Liver function test abnormal [Recovered/Resolved]
  - Overdose [Recovered/Resolved with Sequelae]
